FAERS Safety Report 4430734-4 (Version None)
Quarter: 2004Q3

REPORT INFORMATION
  Report Type: 
  Country: None (occurrence: None)
  Receive Date: 20040819
  Receipt Date: 20040819
  Transmission Date: 20050211
  Serious: Yes (Other)
  Sender: FDA-Public Use
  Company Number: None

PATIENT
  Sex: Female
  Weight: 60.3284 kg

DRUGS (12)
  1. DOCETAXEL  80MG/ML  AVENTIS [Suspect]
     Indication: PANCREATIC CARCINOMA
     Dosage: 48.75 MG/M2  Q 21-DAYS  INTRAVENOUS
     Route: 042
     Dates: start: 20040406, end: 20040810
  2. IRINOTECAN [Suspect]
     Indication: PANCREATIC CARCINOMA
     Dosage: 120MG/M2  Q21-DAYS  INTRAVENOUS
     Route: 042
     Dates: start: 20040406, end: 20040810
  3. NORVASC [Concomitant]
  4. PANCRELIPASE [Concomitant]
  5. ISOSORBIDE [Concomitant]
  6. TRIAMCILONE [Concomitant]
  7. HYDROMORPHONE HCL [Concomitant]
  8. OXYCONTIN [Concomitant]
  9. COLACE [Concomitant]
  10. RESTORIL [Concomitant]
  11. LORAZEPAM [Concomitant]
  12. IMODIUM [Concomitant]

REACTIONS (3)
  - NEUTROPHIL COUNT DECREASED [None]
  - THERAPY NON-RESPONDER [None]
  - WHITE BLOOD CELL COUNT DECREASED [None]
